FAERS Safety Report 9633619 (Version 1)
Quarter: 2013Q4

REPORT INFORMATION
  Report Type: Spontaneous
  Country: US (occurrence: US)
  Receive Date: 20131021
  Receipt Date: 20131021
  Transmission Date: 20140711
  Serious: No
  Sender: FDA-Public Use
  Company Number: US-PFIZER INC-2013300514

PATIENT
  Age: 30 Year
  Sex: Female
  Weight: 70.3 kg

DRUGS (8)
  1. CHANTIX [Suspect]
     Indication: SMOKING CESSATION THERAPY
     Dosage: UNK
     Dates: start: 20131001, end: 201310
  2. CHANTIX [Suspect]
     Dosage: 1 MG, 2X/DAY
     Dates: start: 201310
  3. ATIVAN [Concomitant]
     Dosage: 2 MG, AS NEEDED
  4. TRAMADOL [Concomitant]
     Dosage: 500 MG, AS NEEDED
  5. FLUOXETINE [Concomitant]
     Dosage: 40 MG, DAILY
  6. BENTYL [Concomitant]
     Dosage: 20 MG, 3X/DAY
  7. ASACOL [Concomitant]
     Dosage: 800 MG, 2X/DAY
  8. PROPRANOLOL [Concomitant]
     Dosage: 80 MG, DAILY

REACTIONS (1)
  - Therapeutic response unexpected [Unknown]
